FAERS Safety Report 16608939 (Version 1)
Quarter: 2019Q3

REPORT INFORMATION
  Report Type: Spontaneous
  Country: US (occurrence: US)
  Receive Date: 20190720
  Receipt Date: 20190720
  Transmission Date: 20191004
  Serious: Yes (Disabling, Other)
  Sender: FDA-Public Use
  Company Number: None

PATIENT
  Age: 67 Year
  Sex: Female

DRUGS (1)
  1. PINK EYE RELIEF (HOMEOPATHICS) [Suspect]
     Active Substance: ATROPA BELLADONNA\HOMEOPATHICS
     Indication: EYELID MARGIN CRUSTING
     Dosage: ?          QUANTITY:1 DROP(S);?
     Dates: start: 20190401, end: 20190616

REACTIONS (4)
  - Eye infection [None]
  - Recalled product administered [None]
  - Vision blurred [None]
  - Pain [None]

NARRATIVE: CASE EVENT DATE: 20190710
